FAERS Safety Report 25531113 (Version 2)
Quarter: 2025Q3

REPORT INFORMATION
  Report Type: Report from Study
  Country: BR (occurrence: BR)
  Receive Date: 20250708
  Receipt Date: 20250721
  Transmission Date: 20251021
  Serious: Yes (Other)
  Sender: NOVARTIS
  Company Number: BR-002147023-NVSC2025BR080784

PATIENT
  Age: 56 Year
  Sex: Female

DRUGS (4)
  1. COSENTYX [Suspect]
     Active Substance: SECUKINUMAB
     Indication: Psoriasis
     Route: 065
  2. COSENTYX [Suspect]
     Active Substance: SECUKINUMAB
     Route: 065
     Dates: end: 20240426
  3. COSENTYX [Suspect]
     Active Substance: SECUKINUMAB
     Route: 065
     Dates: start: 202412
  4. COSENTYX [Suspect]
     Active Substance: SECUKINUMAB
     Route: 065
     Dates: start: 20250426

REACTIONS (12)
  - Psoriasis [Not Recovered/Not Resolved]
  - Pain of skin [Not Recovered/Not Resolved]
  - Pain [Recovering/Resolving]
  - Erythema [Not Recovered/Not Resolved]
  - Pruritus [Recovering/Resolving]
  - Skin exfoliation [Not Recovered/Not Resolved]
  - Skin tightness [Not Recovered/Not Resolved]
  - Drug hypersensitivity [Recovering/Resolving]
  - Burning sensation [Recovering/Resolving]
  - Head discomfort [Unknown]
  - Loss of therapeutic response [Unknown]
  - Product use issue [Unknown]

NARRATIVE: CASE EVENT DATE: 20241015
